FAERS Safety Report 5961594-8 (Version None)
Quarter: 2008Q4

REPORT INFORMATION
  Report Type: 
  Country: None (occurrence: None)
  Receive Date: 20081119
  Receipt Date: 20081024
  Transmission Date: 20090506
  Serious: Yes (Death, Other)
  Sender: FDA-Public Use
  Company Number: DIAT-45

PATIENT

DRUGS (5)
  1. DAUNOXOME [Suspect]
     Indication: MYELOID LEUKAEMIA
     Dosage: 80 MG/M2 QD
  2. ARA-C [Suspect]
     Indication: MYELOID LEUKAEMIA
     Dosage: 100 MG/M2 COIN IV
     Route: 042
  3. HYDROXYCARBAMIDE [Suspect]
     Indication: DRUG THERAPY
     Dosage: 2000 MG/M2 QD
  4. CIPROFLOXACIN [Concomitant]
  5. ANTIFUNGAL [Concomitant]

REACTIONS (15)
  - CARDIOTOXICITY [None]
  - CARDIOVASCULAR DISORDER [None]
  - COMA [None]
  - ESCHERICHIA INFECTION [None]
  - FEBRILE NEUTROPENIA [None]
  - HAEMORRHAGE [None]
  - INFECTION [None]
  - INTESTINAL ISCHAEMIA [None]
  - LIVER ABSCESS [None]
  - LUNG INFECTION [None]
  - PYREXIA [None]
  - SHOCK [None]
  - STUPOR [None]
  - SUDDEN CARDIAC DEATH [None]
  - VENTRICULAR FIBRILLATION [None]
